FAERS Safety Report 24763468 (Version 1)
Quarter: 2024Q4

REPORT INFORMATION
  Report Type: Report from Study
  Country: CA (occurrence: CA)
  Receive Date: 20241222
  Receipt Date: 20241222
  Transmission Date: 20250115
  Serious: Yes (Other)
  Sender: HLS THERAPEUTICS
  Company Number: CA-HLS-202403098

PATIENT
  Age: 26 Year
  Sex: Male

DRUGS (1)
  1. CLOZARIL [Suspect]
     Active Substance: CLOZAPINE
     Indication: Product used for unknown indication
     Dosage: NOV 20 INITIAL DOSAGE OF 12.5MG.?NOVEMBER 21, DOSAGE, 12.5MG TWICE PER DAY.?NOVEMBER 26, 2024, DOSAG
     Route: 048
     Dates: start: 20241120

REACTIONS (2)
  - C-reactive protein increased [Not Recovered/Not Resolved]
  - Tachycardia [Recovered/Resolved]

NARRATIVE: CASE EVENT DATE: 20241120
